FAERS Safety Report 6058435-X (Version None)
Quarter: 2009Q1

REPORT INFORMATION
  Report Type: 
  Country: None (occurrence: None)
  Receive Date: 20090127
  Receipt Date: 20090127
  Transmission Date: 20090719
  Serious: Yes (Hospitalization)
  Sender: FDA-Public Use
  Company Number: None

PATIENT
  Sex: Male
  Weight: 81.65 kg

DRUGS (1)
  1. TEMOZOLOMIDE [Suspect]
     Dosage: 200 MG

REACTIONS (2)
  - PLATELET COUNT DECREASED [None]
  - PLATELET DISORDER [None]
